FAERS Safety Report 4491833-4 (Version None)
Quarter: 2004Q4

REPORT INFORMATION
  Report Type: 
  Country: None (occurrence: None)
  Receive Date: 20041028
  Receipt Date: 20041028
  Transmission Date: 20050328
  Serious: Yes (Other)
  Sender: FDA-Public Use
  Company Number: None

PATIENT
  Sex: Female
  Weight: 86.637 kg

DRUGS (5)
  1. CARBAMAZEPINE [Suspect]
     Indication: SCHIZOAFFECTIVE DISORDER
     Dosage: 200 MG 1 QAM AND 2 HS ORAL
     Route: 048
     Dates: start: 20041001, end: 20041004
  2. RISPERDAL [Concomitant]
  3. ESKALITH CR [Concomitant]
  4. BENZTROPINE MESYLATE [Concomitant]
  5. SYNTHROID [Concomitant]

REACTIONS (2)
  - PHARMACEUTICAL PRODUCT COMPLAINT [None]
  - VOMITING [None]
